FAERS Safety Report 13715356 (Version 2)
Quarter: 2017Q3

REPORT INFORMATION
  Report Type: Spontaneous
  Country: DE (occurrence: DE)
  Receive Date: 20170704
  Receipt Date: 20170712
  Transmission Date: 20171127
  Serious: Yes (Other)
  Sender: FDA-Public Use
  Company Number: DE-TEVA-783908GER

PATIENT
  Age: 3 Year
  Sex: Female

DRUGS (2)
  1. VINCRISTINE [Suspect]
     Active Substance: VINCRISTINE
     Route: 065
  2. ISOTRETINOIN [Suspect]
     Active Substance: ISOTRETINOIN
     Indication: NEUROBLASTOMA RECURRENT
     Route: 048

REACTIONS (9)
  - Dry skin [Unknown]
  - Polyneuropathy [Unknown]
  - Gait disturbance [Unknown]
  - Dwarfism [Unknown]
  - Headache [Unknown]
  - Growth failure [Unknown]
  - Pain in extremity [Unknown]
  - Constipation [Unknown]
  - Epiphyses premature fusion [Unknown]
